FAERS Safety Report 5498626-X (Version None)
Quarter: 2007Q4

REPORT INFORMATION
  Report Type: 
  Country: None (occurrence: None)
  Receive Date: 20071024
  Receipt Date: 20071009
  Transmission Date: 20080405
  Serious: Yes (Other)
  Sender: FDA-Public Use
  Company Number: 018476

PATIENT
  Age: 26 Year
  Sex: Female

DRUGS (2)
  1. CLARAVIS [Suspect]
     Dosage: 40 MG, QD, ORAL
     Route: 048
     Dates: start: 20070816, end: 20070913
  2. YASMIN [Concomitant]

REACTIONS (6)
  - DRUG DOSE OMISSION [None]
  - DRUG EXPOSURE DURING PREGNANCY [None]
  - ECTOPIC PREGNANCY [None]
  - PREGNANCY ON ORAL CONTRACEPTIVE [None]
  - PREGNANCY WITH CONTRACEPTIVE DEVICE [None]
  - TREATMENT NONCOMPLIANCE [None]
